FAERS Safety Report 4557359-4 (Version None)
Quarter: 2005Q1

REPORT INFORMATION
  Report Type: 
  Country: None (occurrence: None)
  Receive Date: 20050119
  Receipt Date: 20050119
  Transmission Date: 20050727
  Serious: No
  Sender: FDA-Public Use
  Company Number: None

PATIENT
  Age: 31 Year
  Sex: Male
  Weight: 77.1115 kg

DRUGS (2)
  1. ZYPREXA [Suspect]
     Indication: SCHIZOPHRENIA, PARANOID TYPE
     Dosage: 15 MG   QHS   ORAL
     Route: 048
     Dates: start: 20020924, end: 20040921
  2. INSULIN CONTROL [Concomitant]

REACTIONS (1)
  - DIABETES MELLITUS INSULIN-DEPENDENT [None]
